FAERS Safety Report 20775195 (Version 2)
Quarter: 2022Q3

REPORT INFORMATION
  Report Type: Report from Study
  Country: US (occurrence: US)
  Receive Date: 20220502
  Receipt Date: 20220713
  Transmission Date: 20221027
  Serious: Yes (Death, Other)
  Sender: FDA-Public Use
  Company Number: US-REGENERON PHARMACEUTICALS, INC.-2022-13074

PATIENT
  Sex: Male

DRUGS (11)
  1. EYLEA [Suspect]
     Active Substance: AFLIBERCEPT
     Indication: Neovascular age-related macular degeneration
     Dosage: 2 MG, 4-6 WEEKS IN RIGHT EYE
     Dates: start: 20200909, end: 20200909
  2. EYLEA [Suspect]
     Active Substance: AFLIBERCEPT
     Indication: Choroidal neovascularisation
     Dosage: 2 MG, 4-6 WEEKS IN RIGHT EYE
     Dates: start: 20201021, end: 20201021
  3. EYLEA [Suspect]
     Active Substance: AFLIBERCEPT
     Dosage: 2 MG, 4-6 WEEKS IN RIGHT EYE
     Dates: start: 20201209, end: 20201209
  4. PROPARACAINE [PROXYMETACAINE] [Concomitant]
     Indication: Anaesthesia
     Dosage: UNK
     Route: 061
     Dates: start: 20200909, end: 20200909
  5. BETADINE [Concomitant]
     Active Substance: POVIDONE-IODINE
     Indication: Preoperative care
     Dosage: UNK
     Dates: start: 20201209, end: 20201209
  6. BETAPACE [Concomitant]
     Active Substance: SOTALOL HYDROCHLORIDE
     Indication: Product used for unknown indication
     Dosage: 1 TABLET, BID
     Route: 048
  7. VITAMIN D3 [Concomitant]
     Active Substance: CHOLECALCIFEROL
     Indication: Product used for unknown indication
     Dosage: 1 CAPSULE, QD
     Route: 048
  8. METOPROLOL SUCCINATE [Concomitant]
     Active Substance: METOPROLOL SUCCINATE
     Indication: Product used for unknown indication
     Dosage: 1 TABLET, QD
     Route: 048
  9. SIMVASTATIN [Concomitant]
     Active Substance: SIMVASTATIN
     Indication: Product used for unknown indication
     Dosage: 1 TABLET, QD IN THE EVENING
     Route: 048
  10. WARFARIN [Concomitant]
     Active Substance: WARFARIN
     Indication: Product used for unknown indication
     Dosage: 1 TABLET, QD
     Route: 048
  11. ZESTRIL [Concomitant]
     Active Substance: LISINOPRIL
     Indication: Product used for unknown indication
     Dosage: 1 TABLET, QD
     Route: 048

REACTIONS (5)
  - Death [Fatal]
  - Dry age-related macular degeneration [Unknown]
  - Detachment of retinal pigment epithelium [Unknown]
  - Retinal drusen [Unknown]
  - Visual acuity reduced [Not Recovered/Not Resolved]

NARRATIVE: CASE EVENT DATE: 20200101
